FAERS Safety Report 20648746 (Version 2)
Quarter: 2022Q2

REPORT INFORMATION
  Report Type: Spontaneous
  Country: JP (occurrence: JP)
  Receive Date: 20220329
  Receipt Date: 20220531
  Transmission Date: 20220721
  Serious: Yes (Other)
  Sender: FDA-Public Use
  Company Number: JP-MSD-M2022-12418

PATIENT
  Age: 74 Year
  Sex: Male

DRUGS (3)
  1. CUBICIN [Suspect]
     Active Substance: DAPTOMYCIN
     Dosage: UNK
     Route: 041
  2. DAYVIGO [Concomitant]
     Active Substance: LEMBOREXANT
     Dosage: UNK
     Route: 048
     Dates: end: 20220323
  3. PREGABALIN [Concomitant]
     Active Substance: PREGABALIN
     Dosage: UNK
     Route: 065
     Dates: end: 20220323

REACTIONS (1)
  - Altered state of consciousness [Unknown]

NARRATIVE: CASE EVENT DATE: 20220323
